FAERS Safety Report 9620025 (Version 2)
Quarter: 2013Q4

REPORT INFORMATION
  Report Type: Spontaneous
  Country: US (occurrence: US)
  Receive Date: 20131014
  Receipt Date: 20131031
  Transmission Date: 20140711
  Serious: Yes (Other)
  Sender: FDA-Public Use
  Company Number: US-PFIZER INC-2013292615

PATIENT
  Sex: Female

DRUGS (4)
  1. LIPITOR [Suspect]
     Dosage: UNK
  2. CELEBREX [Suspect]
     Dosage: UNK
  3. PROTONIX [Suspect]
     Dosage: UNK, 2X/DAY
  4. ZOLOFT [Suspect]
     Dosage: UNK

REACTIONS (7)
  - Back disorder [Unknown]
  - Facial bones fracture [Unknown]
  - Concussion [Unknown]
  - Visual impairment [Unknown]
  - Hearing impaired [Unknown]
  - Feeling abnormal [Unknown]
  - Thinking abnormal [Unknown]
